FAERS Safety Report 9805901 (Version 2)
Quarter: 2014Q1

REPORT INFORMATION
  Report Type: Spontaneous
  Country: US (occurrence: US)
  Receive Date: 20140109
  Receipt Date: 20140314
  Transmission Date: 20141002
  Serious: Yes (Other)
  Sender: FDA-Public Use
  Company Number: US-BAYER-2014-002218

PATIENT
  Age: 38 Year
  Sex: Female
  Weight: 91 kg

DRUGS (7)
  1. BETASERON [Suspect]
     Indication: MULTIPLE SCLEROSIS
     Dosage: UNK UNK, QD
     Dates: start: 2010, end: 201304
  2. BETASERON [Suspect]
     Indication: MULTIPLE SCLEROSIS
     Dosage: UNK
     Dates: start: 201308
  3. AUBAGIO [Concomitant]
     Indication: MULTIPLE SCLEROSIS
     Dosage: 14 MG, ONCE
     Dates: start: 201402
  4. LEVOTHYROXINE [Concomitant]
     Indication: HYPERTHYROIDISM
     Dosage: 125 ?G,DAILY
     Dates: start: 199811
  5. VALIUM [Concomitant]
     Indication: ANXIETY
     Dosage: 5 MG, HS
  6. VALIUM [Concomitant]
     Indication: SLEEP DISORDER
  7. FAMOTIDINE [Concomitant]
     Indication: DYSPEPSIA
     Dosage: 20 MG, DAILY

REACTIONS (17)
  - Multiple sclerosis relapse [None]
  - Optic neuritis [None]
  - Hepatic enzyme abnormal [None]
  - Drug intolerance [None]
  - Mobility decreased [None]
  - Inappropriate schedule of drug administration [None]
  - Influenza like illness [Recovering/Resolving]
  - Migraine [Recovering/Resolving]
  - Arthralgia [Recovering/Resolving]
  - Myalgia [Recovering/Resolving]
  - Pain [Recovering/Resolving]
  - Insomnia [Recovering/Resolving]
  - Nausea [Recovering/Resolving]
  - Diarrhoea [Recovering/Resolving]
  - Inflammation [Recovering/Resolving]
  - Amnesia [Recovering/Resolving]
  - Hot flush [Recovering/Resolving]
